FAERS Safety Report 14733957 (Version 2)
Quarter: 2018Q2

REPORT INFORMATION
  Report Type: Spontaneous
  Country: US (occurrence: US)
  Receive Date: 20180409
  Receipt Date: 20180605
  Transmission Date: 20180711
  Serious: Yes (Hospitalization)
  Sender: FDA-Public Use
  Company Number: US-BAYER-2018-058974

PATIENT
  Age: 74 Year
  Sex: Male
  Weight: 117 kg

DRUGS (2)
  1. ALKA-SELTZER PLUS DAY NON-DROWSY COLD AND FLU FORMULA [Suspect]
     Active Substance: ACETAMINOPHEN\DEXTROMETHORPHAN HYDROBROMIDE\PHENYLEPHRINE HYDROCHLORIDE
     Indication: HYPERSENSITIVITY
     Dosage: 2 DF, UNK
     Route: 048
     Dates: start: 2018, end: 2018
  2. ALKA-SELTZER PLUS DAY NON-DROWSY COLD AND FLU FORMULA [Suspect]
     Active Substance: ACETAMINOPHEN\DEXTROMETHORPHAN HYDROBROMIDE\PHENYLEPHRINE HYDROCHLORIDE
     Indication: NASOPHARYNGITIS

REACTIONS (9)
  - Influenza [None]
  - Drug ineffective [None]
  - Disorientation [None]
  - Nasal congestion [None]
  - Feeling abnormal [None]
  - Pneumonia [Recovered/Resolved]
  - Feeling abnormal [Recovered/Resolved]
  - Asthenia [None]
  - Dizziness [None]

NARRATIVE: CASE EVENT DATE: 2018
